FAERS Safety Report 25609456 (Version 2)
Quarter: 2025Q3

REPORT INFORMATION
  Report Type: Report from Study
  Country: PR (occurrence: PR)
  Receive Date: 20250727
  Receipt Date: 20250808
  Transmission Date: 20251020
  Serious: Yes (Death, Hospitalization)
  Sender: ABBVIE
  Company Number: PR-ABBVIE-6385157

PATIENT
  Age: 65 Year
  Sex: Male

DRUGS (5)
  1. VENCLEXTA [Suspect]
     Active Substance: VENETOCLAX
     Indication: Mantle cell lymphoma
     Route: 048
     Dates: start: 20250306, end: 20250704
  2. DICLOFENAC SODIUM [Concomitant]
     Active Substance: DICLOFENAC SODIUM
     Indication: Product used for unknown indication
     Route: 048
  3. JAYPIRCA [Concomitant]
     Active Substance: PIRTOBRUTINIB
     Indication: Product used for unknown indication
     Route: 048
  4. ORPHENADRINE CITRATE [Concomitant]
     Active Substance: ORPHENADRINE CITRATE
     Indication: Product used for unknown indication
     Route: 048
  5. TRUXIMA [Concomitant]
     Active Substance: RITUXIMAB-ABBS
     Indication: Product used for unknown indication

REACTIONS (4)
  - Leukaemia [Fatal]
  - Pneumonia [Unknown]
  - COVID-19 [Unknown]
  - Pulmonary embolism [Unknown]

NARRATIVE: CASE EVENT DATE: 20250101
